FAERS Safety Report 9421707 (Version 1)
Quarter: 2013Q3

REPORT INFORMATION
  Report Type: Spontaneous
  Country: US (occurrence: US)
  Receive Date: 20130726
  Receipt Date: 20130726
  Transmission Date: 20140515
  Serious: No
  Sender: FDA-Public Use
  Company Number: US-009507513-1307USA013829

PATIENT
  Age: 25 Year
  Sex: Female
  Weight: 86.17 kg

DRUGS (6)
  1. IMPLANON [Suspect]
     Indication: CONTRACEPTION
     Dosage: 1 ROD UP TO 3 YEARS
     Route: 059
     Dates: start: 20100819
  2. BACTRIM [Concomitant]
  3. PRAVASTATIN SODIUM [Concomitant]
  4. METFORMIN [Concomitant]
  5. VITAMIN D (UNSPECIFIED) [Concomitant]
  6. POTASSIUM (UNSPECIFIED) [Concomitant]

REACTIONS (8)
  - Malaise [Unknown]
  - Fatigue [Unknown]
  - Vomiting [Unknown]
  - Urinary tract infection [Unknown]
  - Nausea [Unknown]
  - Weight decreased [Unknown]
  - Weight increased [Unknown]
  - Unintended pregnancy [Unknown]
